FAERS Safety Report 11658696 (Version 4)
Quarter: 2015Q4

REPORT INFORMATION
  Report Type: Report from Study
  Country: PH (occurrence: PH)
  Receive Date: 20151026
  Receipt Date: 20151117
  Transmission Date: 20160304
  Serious: Yes (Death, Hospitalization, Other)
  Sender: FDA-Public Use
  Company Number: PHHY2015PH136296

PATIENT
  Sex: Male

DRUGS (4)
  1. TINZAPARIN [Concomitant]
     Active Substance: TINZAPARIN
     Indication: PRODUCT USED FOR UNKNOWN INDICATION
     Route: 065
  2. GLIVEC [Suspect]
     Active Substance: IMATINIB MESYLATE
     Dosage: 600 MG, QD
     Route: 048
     Dates: start: 20150522, end: 201506
  3. GLIVEC [Suspect]
     Active Substance: IMATINIB MESYLATE
     Indication: GASTROINTESTINAL STROMAL TUMOUR
     Dosage: 400 MG, QD
     Route: 048
     Dates: start: 20131114, end: 20150522
  4. INNOHEP [Concomitant]
     Active Substance: TINZAPARIN SODIUM
     Indication: PRODUCT USED FOR UNKNOWN INDICATION
     Route: 065

REACTIONS (10)
  - Gastrointestinal stromal tumour [Fatal]
  - Scrotal swelling [Recovered/Resolved]
  - Fluid retention [Recovered/Resolved]
  - Lung infection [Fatal]
  - No therapeutic response [Unknown]
  - Abdominal distension [Recovered/Resolved]
  - Malignant pleural effusion [Fatal]
  - Abdominal pain upper [Unknown]
  - Oedema [Recovered/Resolved]
  - Metastases to liver [Unknown]
